FAERS Safety Report 19617594 (Version 1)
Quarter: 2021Q3

REPORT INFORMATION
  Report Type: Spontaneous
  Country: US (occurrence: US)
  Receive Date: 20210727
  Receipt Date: 20210727
  Transmission Date: 20211014
  Serious: No
  Sender: FDA-Public Use
  Company Number: US-ABBVIE-21K-163-3916570-00

PATIENT
  Sex: Female

DRUGS (1)
  1. ORILISSA [Suspect]
     Active Substance: ELAGOLIX SODIUM
     Indication: PRODUCT USED FOR UNKNOWN INDICATION
     Route: 048
     Dates: start: 2020

REACTIONS (5)
  - Menstruation delayed [Unknown]
  - Eructation [Unknown]
  - General symptom [Unknown]
  - Parosmia [Unknown]
  - Hyperactive pharyngeal reflex [Unknown]

NARRATIVE: CASE EVENT DATE: 202102
